FAERS Safety Report 4532045-5 (Version None)
Quarter: 2004Q4

REPORT INFORMATION
  Report Type: 
  Country: None (occurrence: None)
  Receive Date: 20041220
  Receipt Date: 20041209
  Transmission Date: 20050328
  Serious: Yes (Life-Threatening)
  Sender: FDA-Public Use
  Company Number: JP-GLAXOSMITHKLINE-B0360618A

PATIENT
  Age: 66 Year
  Sex: Female

DRUGS (6)
  1. PAXIL [Suspect]
     Indication: DEPRESSION
     Route: 048
     Dates: start: 20040423, end: 20041125
  2. ARTANE [Concomitant]
     Dosage: 2MG THREE TIMES PER DAY
     Route: 048
     Dates: start: 20040823, end: 20041126
  3. SOLANAX [Concomitant]
     Dosage: .4MG THREE TIMES PER DAY
     Route: 048
     Dates: start: 20040705, end: 20041126
  4. SILECE [Concomitant]
     Dosage: 2MG PER DAY
     Route: 065
     Dates: start: 20040705, end: 20041208
  5. LAXOBERON [Concomitant]
     Dosage: 2.5MG PER DAY
     Route: 048
     Dates: start: 20040705, end: 20041126
  6. PURSENNID [Concomitant]
     Dosage: 12MG PER DAY
     Route: 048
     Dates: start: 20040705, end: 20041126

REACTIONS (7)
  - AKINESIA [None]
  - MUTISM [None]
  - MYOCLONUS [None]
  - PAIN [None]
  - RHABDOMYOLYSIS [None]
  - SEROTONIN SYNDROME [None]
  - STUPOR [None]
